FAERS Safety Report 9356776 (Version 1)
Quarter: 2013Q2

REPORT INFORMATION
  Report Type: Spontaneous
  Country: ES (occurrence: ES)
  Receive Date: 20130619
  Receipt Date: 20130619
  Transmission Date: 20140414
  Serious: Yes (Other)
  Sender: FDA-Public Use
  Company Number: ES-UCBSA-088604

PATIENT
  Age: 71 Year
  Sex: Female

DRUGS (2)
  1. KEPPRA [Suspect]
     Route: 048
     Dates: start: 20130507
  2. CYMBALTA [Suspect]
     Indication: VIITH NERVE PARALYSIS
     Dosage: TOTAL DAILY DOSE: 90 MG
     Route: 048
     Dates: start: 20130218

REACTIONS (1)
  - Extrapyramidal disorder [Recovering/Resolving]
